FAERS Safety Report 5192538-7 (Version None)
Quarter: 2006Q4

REPORT INFORMATION
  Report Type: 
  Country: None (occurrence: None)
  Receive Date: 20061220
  Receipt Date: 20061208
  Transmission Date: 20070319
  Serious: Yes (Death)
  Sender: FDA-Public Use
  Company Number: 2006BI017460

PATIENT
  Sex: Female

DRUGS (5)
  1. ZEVALIN [Suspect]
     Indication: B-CELL LYMPHOMA
     Dosage: 15 MBQ; 1X; IV
     Route: 042
  2. RITUXIMAB [Concomitant]
  3. ACETAMINOPHEN [Concomitant]
  4. ANTIHISTAMINES [Concomitant]
  5. GLUCOCORTICOIDS [Concomitant]

REACTIONS (2)
  - HAEMATOTOXICITY [None]
  - NEUTROPENIC SEPSIS [None]
